FAERS Safety Report 6895429-6 (Version None)
Quarter: 2010Q3

REPORT INFORMATION
  Report Type: 
  Country: None (occurrence: None)
  Receive Date: 20100730
  Receipt Date: 20100730
  Transmission Date: 20110219
  Serious: Yes (Hospitalization)
  Sender: FDA-Public Use
  Company Number: None

PATIENT
  Age: 54 Year
  Sex: Male

DRUGS (2)
  1. LISINOPRIL [Suspect]
     Indication: HYPERTENSION
     Dosage: 10 MG EVERY DAY PO
     Route: 048
     Dates: start: 20091016, end: 20100614
  2. ETODOLAC [Suspect]
     Indication: PAIN
     Dosage: 400 MG PRN PO
     Route: 048
     Dates: start: 20090611, end: 20090614

REACTIONS (6)
  - ABDOMINAL PAIN [None]
  - ANGIOEDEMA [None]
  - DYSPNOEA [None]
  - RASH PRURITIC [None]
  - SENSATION OF FOREIGN BODY [None]
  - URTICARIA [None]
